FAERS Safety Report 7277244-7 (Version None)
Quarter: 2011Q1

REPORT INFORMATION
  Report Type: 
  Country: None (occurrence: None)
  Receive Date: 20110202
  Receipt Date: 20110202
  Transmission Date: 20110831
  Serious: Yes (Life-Threatening, Hospitalization)
  Sender: FDA-Public Use
  Company Number: None

PATIENT
  Sex: Male
  Weight: 99.7913 kg

DRUGS (1)
  1. DAPTOMYCIN [Suspect]
     Indication: STAPHYLOCOCCAL OSTEOMYELITIS
     Dates: start: 20101216, end: 20101229

REACTIONS (3)
  - RESPIRATORY FAILURE [None]
  - EOSINOPHILIC PNEUMONIA [None]
  - CARDIAC FAILURE CONGESTIVE [None]
